FAERS Safety Report 16498704 (Version 1)
Quarter: 2019Q2

REPORT INFORMATION
  Report Type: Report from Study
  Country: BE (occurrence: BE)
  Receive Date: 20190629
  Receipt Date: 20190629
  Transmission Date: 20190711
  Serious: Yes (Death, Life-Threatening, Hospitalization, Other)
  Sender: FDA-Public Use
  Company Number: BE-AMGEN-BELCT2019104129

PATIENT
  Age: 68 Year
  Sex: Female

DRUGS (3)
  1. LENALIDOMIDE [Suspect]
     Active Substance: LENALIDOMIDE
     Indication: PLASMA CELL LEUKAEMIA
     Dosage: UNK UNK, PER CHEMO REGIM
     Route: 065
     Dates: start: 20190531
  2. CARFILZOMIB [Suspect]
     Active Substance: CARFILZOMIB
     Indication: PLASMA CELL LEUKAEMIA
     Dosage: UNK UNK, PER CHEMO REGIM
     Route: 042
     Dates: start: 20190531
  3. DEXAMETHASONE. [Suspect]
     Active Substance: DEXAMETHASONE
     Indication: PLASMA CELL LEUKAEMIA
     Dosage: UNK UNK, PER CHEMO REGIM
     Route: 065
     Dates: start: 20190531

REACTIONS (2)
  - Disseminated intravascular coagulation [Fatal]
  - Hepatotoxicity [Not Recovered/Not Resolved]

NARRATIVE: CASE EVENT DATE: 20190614
